FAERS Safety Report 8237565-8 (Version None)
Quarter: 2012Q1

REPORT INFORMATION
  Report Type: 
  Country: None (occurrence: None)
  Receive Date: 20120323
  Receipt Date: 20120314
  Transmission Date: 20120608
  Serious: Yes (Other)
  Sender: FDA-Public Use
  Company Number: 2012HGS-003386

PATIENT
  Age: 25 Year
  Sex: Female

DRUGS (3)
  1. BENLYSTA [Suspect]
     Indication: SYSTEMIC LUPUS ERYTHEMATOSUS
     Dosage: INTRAVENOUS DRIP
     Route: 041
     Dates: start: 20120222
  2. IMURAN [Suspect]
     Dates: end: 20020307
  3. PREDNISONE [Concomitant]

REACTIONS (2)
  - SCAB [None]
  - HERPES ZOSTER [None]
